FAERS Safety Report 4571230-3 (Version None)
Quarter: 2005Q1

REPORT INFORMATION
  Report Type: 
  Country: None (occurrence: None)
  Receive Date: 20050202
  Receipt Date: 20050126
  Transmission Date: 20050727
  Serious: Yes (Hospitalization)
  Sender: FDA-Public Use
  Company Number: 2005UW01404

PATIENT
  Age: 78 Year
  Sex: Female
  Weight: 80.7403 kg

DRUGS (2)
  1. IRESSA [Suspect]
     Indication: NON-SMALL CELL LUNG CANCER STAGE IV
     Dosage: 250 MG QD PO
     Route: 048
     Dates: start: 20050112, end: 20050126
  2. TAXOTERE [Suspect]
     Indication: NON-SMALL CELL LUNG CANCER STAGE IV
     Dosage: 36 MG/M2 / 69 MG
     Dates: start: 20050118

REACTIONS (6)
  - ABDOMINAL PAIN [None]
  - ANOREXIA [None]
  - DEHYDRATION [None]
  - DIARRHOEA [None]
  - NAUSEA [None]
  - VOMITING [None]
